FAERS Safety Report 5389025-X (Version None)
Quarter: 2007Q3

REPORT INFORMATION
  Report Type: 
  Country: None (occurrence: None)
  Receive Date: 20070717
  Receipt Date: 20070706
  Transmission Date: 20080115
  Serious: Yes (Death, Other)
  Sender: FDA-Public Use
  Company Number: GB-JNJFOC-20070701246

PATIENT
  Sex: Male
  Weight: 85 kg

DRUGS (10)
  1. REMICADE [Suspect]
     Indication: RHEUMATOID ARTHRITIS
     Route: 042
  2. METHOTREXATE [Concomitant]
  3. PREDNISOLONE [Concomitant]
  4. ADIZEM [Concomitant]
  5. CALCICHEW [Concomitant]
  6. DIGOXIN [Concomitant]
  7. DOXAZOSIN MESYLATE [Concomitant]
  8. SOTALOL HYDROCHLORIDE [Concomitant]
  9. FOLIC ACID [Concomitant]
  10. CO-AMILOFRUSE [Concomitant]

REACTIONS (1)
  - CEREBROVASCULAR ACCIDENT [None]
